FAERS Safety Report 21301444 (Version 1)
Quarter: 2022Q3

REPORT INFORMATION
  Report Type: Spontaneous
  Country: US (occurrence: None)
  Receive Date: 20220906
  Receipt Date: 20220906
  Transmission Date: 20221026
  Serious: Yes (Hospitalization)
  Sender: FDA-Public Use
  Company Number: None

PATIENT
  Age: 66 Year
  Sex: Male
  Weight: 137.44 kg

DRUGS (15)
  1. CAPECITABINE [Suspect]
     Active Substance: CAPECITABINE
     Indication: Colon cancer
     Dosage: 1500MG TWICE A DAY ORAL
     Route: 048
     Dates: end: 20220901
  2. ATORVASTATIN [Concomitant]
     Active Substance: ATORVASTATIN
  3. AZITHROMYCIN [Concomitant]
     Active Substance: AZITHROMYCIN
  4. FAMOTIDINE [Concomitant]
     Active Substance: FAMOTIDINE
  5. FLUOXETINE [Concomitant]
     Active Substance: FLUOXETINE HYDROCHLORIDE
  6. LOSARTAN [Concomitant]
     Active Substance: LOSARTAN
  7. POTASSIUM-HCTZ [Concomitant]
  8. MONTELUKAST SODIUM [Concomitant]
     Active Substance: MONTELUKAST SODIUM
  9. ONDANSETRON [Concomitant]
     Active Substance: ONDANSETRON
  10. PRAVASTATIN [Concomitant]
     Active Substance: PRAVASTATIN
  11. PREDNISONE [Concomitant]
     Active Substance: PREDNISONE
  12. ROPINIROLE [Concomitant]
     Active Substance: ROPINIROLE
  13. SULFAMETHOXAZOLE\TRIMETHOPRIM [Concomitant]
     Active Substance: SULFAMETHOXAZOLE\TRIMETHOPRIM
  14. TAMSULOSIN [Concomitant]
     Active Substance: TAMSULOSIN
  15. TIZANIDINE [Concomitant]
     Active Substance: TIZANIDINE

REACTIONS (3)
  - Bile duct stone [None]
  - Pyrexia [None]
  - Therapy interrupted [None]
